FAERS Safety Report 6876357-9 (Version None)
Quarter: 2010Q3

REPORT INFORMATION
  Report Type: 
  Country: None (occurrence: None)
  Receive Date: 20100727
  Receipt Date: 20070712
  Transmission Date: 20110219
  Serious: Yes (Hospitalization, Other)
  Sender: FDA-Public Use
  Company Number: US-PFIZER INC-2006112586

PATIENT
  Sex: Male
  Weight: 114.8 kg

DRUGS (10)
  1. CELEBREX [Suspect]
     Indication: PAIN
     Dates: start: 20000501, end: 20040801
  2. VIOXX [Suspect]
     Indication: OSTEOARTHRITIS
     Dates: start: 19990501, end: 20040930
  3. ALEVE (CAPLET) [Concomitant]
  4. ALLOPURINOL [Concomitant]
  5. COLCHICINE [Concomitant]
  6. IBUPROFEN TABLETS [Concomitant]
  7. MORPHINE [Concomitant]
  8. CASODEX [Concomitant]
  9. WARFARIN [Concomitant]
  10. VIAGRA [Concomitant]

REACTIONS (3)
  - CARDIAC FAILURE CONGESTIVE [None]
  - CORONARY ARTERY DISEASE [None]
  - MYOCARDIAL INFARCTION [None]
